FAERS Safety Report 8175728-0 (Version None)
Quarter: 2012Q1

REPORT INFORMATION
  Report Type: 
  Country: None (occurrence: None)
  Receive Date: 20120301
  Receipt Date: 20120201
  Transmission Date: 20120608
  Serious: Yes (Hospitalization)
  Sender: FDA-Public Use
  Company Number: GB-AMGEN-US234432

PATIENT
  Age: 64 Year
  Sex: Male

DRUGS (11)
  1. AMLODIPINE [Concomitant]
     Indication: MYOCARDIAL ISCHAEMIA
     Dosage: 10 MG, QD
     Route: 048
  2. SIMVASTATIN [Concomitant]
     Indication: MYOCARDIAL ISCHAEMIA
     Dosage: 20 MG, QD
     Route: 048
  3. LISINOPRIL [Concomitant]
     Indication: MYOCARDIAL ISCHAEMIA
     Dosage: 20 MG, QD
     Route: 048
  4. DICLOFENAC SODIUM [Concomitant]
     Dosage: 50 MG, TID
     Route: 048
  5. DOXAZOSIN [Concomitant]
     Indication: MYOCARDIAL ISCHAEMIA
     Dosage: 4 MG, QD
     Route: 048
  6. METHOTREXATE [Suspect]
     Dosage: 15 MG, QWK
     Route: 048
     Dates: start: 19980301, end: 20061121
  7. OMEPRAZOLE [Concomitant]
     Dosage: 20 MG, QD
     Route: 048
  8. ACETAMINOPHEN [Concomitant]
     Dosage: UNK
     Route: 048
  9. ENBREL [Suspect]
     Indication: RHEUMATOID ARTHRITIS
     Dosage: 50 MG, QWK
     Route: 058
     Dates: start: 20060705, end: 20061115
  10. ACETYLSALICYLIC ACID SRT [Concomitant]
     Indication: MYOCARDIAL ISCHAEMIA
     Dosage: 75 MG, QD
     Route: 048
  11. FOLIC ACID [Concomitant]
     Dosage: 5 MG, QD

REACTIONS (1)
  - PANCREATITIS [None]
